FAERS Safety Report 14017129 (Version 1)
Quarter: 2017Q3

REPORT INFORMATION
  Report Type: Spontaneous
  Country: DE (occurrence: DE)
  Receive Date: 20170927
  Receipt Date: 20170927
  Transmission Date: 20171128
  Serious: Yes (Disabling)
  Sender: FDA-Public Use
  Company Number: DE-ARALEZ PHARMACEUTICALS R+D INC.-2017-ARA-000648

PATIENT
  Sex: Female

DRUGS (1)
  1. METOPROLOL SUCCINATE. [Suspect]
     Active Substance: METOPROLOL SUCCINATE
     Indication: PRODUCT USED FOR UNKNOWN INDICATION
     Route: 048

REACTIONS (8)
  - Blood pressure abnormal [Unknown]
  - Muscle spasticity [Unknown]
  - Organic brain syndrome [Unknown]
  - Eye disorder [Unknown]
  - Inappropriate schedule of drug administration [Unknown]
  - Aphasia [Unknown]
  - Ataxia [Unknown]
  - Incontinence [Unknown]
